FAERS Safety Report 5605756-8 (Version None)
Quarter: 2008Q1

REPORT INFORMATION
  Report Type: 
  Country: None (occurrence: None)
  Receive Date: 20080129
  Receipt Date: 20080116
  Transmission Date: 20080703
  Serious: Yes (Other)
  Sender: FDA-Public Use
  Company Number: US-ELI_LILLY_AND_COMPANY-US200801004153

PATIENT
  Sex: Female

DRUGS (2)
  1. FORTEO [Suspect]
     Dosage: 20 UG, DAILY (1/D)
     Route: 058
  2. ZOMIG [Concomitant]
     Indication: MIGRAINE
     Dosage: 2.5 MG, AS NEEDED
     Route: 048

REACTIONS (3)
  - EAR PAIN [None]
  - JUGULAR VEIN THROMBOSIS [None]
  - NECK PAIN [None]
